FAERS Safety Report 5672837-2 (Version None)
Quarter: 2008Q1

REPORT INFORMATION
  Report Type: 
  Country: None (occurrence: None)
  Receive Date: 20080319
  Receipt Date: 20070223
  Transmission Date: 20080703
  Serious: No
  Sender: FDA-Public Use
  Company Number: US-KINGPHARMUSA00001-K200700216

PATIENT

DRUGS (4)
  1. ALTACE [Suspect]
     Indication: HYPERTENSION
     Dosage: 5 MG, QD
     Route: 048
     Dates: start: 20070222, end: 20070223
  2. LIPITOR [Concomitant]
     Indication: BLOOD CHOLESTEROL INCREASED
     Dosage: UNK, QD
     Route: 048
  3. PLAVIX [Concomitant]
     Indication: CARDIAC DISORDER
     Dosage: UNK, QD
     Route: 048
  4. VITAMIN CAP [Concomitant]
     Dosage: UNK, QD
     Route: 048

REACTIONS (1)
  - RASH PRURITIC [None]
